FAERS Safety Report 5977983-1 (Version None)
Quarter: 2008Q4

REPORT INFORMATION
  Report Type: 
  Country: None (occurrence: None)
  Receive Date: 20081203
  Receipt Date: 20081111
  Transmission Date: 20090506
  Serious: No
  Sender: FDA-Public Use
  Company Number: US-B.I. PHARMACEUTICALS,INC./RIDGEFIELD-2008-BP-16245BP

PATIENT
  Age: 78 Year
  Sex: Male

DRUGS (6)
  1. MIRAPEX [Suspect]
     Indication: RESTLESS LEGS SYNDROME
     Dosage: .125MG
     Route: 048
  2. LIPITOR [Concomitant]
  3. EFFEXOR [Concomitant]
  4. TETRACYCLINE [Concomitant]
  5. DOXAZOSIN MESYLATE [Concomitant]
  6. VITAMIN D [Concomitant]

REACTIONS (1)
  - DRUG EFFECT DECREASED [None]
